FAERS Safety Report 18901026 (Version 1)
Quarter: 2021Q1

REPORT INFORMATION
  Report Type: Report from Study
  Country: None (occurrence: US)
  Receive Date: 20210217
  Receipt Date: 20210217
  Transmission Date: 20210420
  Serious: Yes (Hospitalization, Other)
  Sender: FDA-Public Use
  Company Number: US-ABBVIE-20K-163-3469654-00

PATIENT
  Age: 50 Year
  Sex: Female
  Weight: 68.1 kg

DRUGS (4)
  1. HYDROCODONE [Concomitant]
     Active Substance: HYDROCODONE
     Indication: PRODUCT USED FOR UNKNOWN INDICATION
     Dosage: 7.5/325 TWICE A DAY
  2. HUMIRA [Suspect]
     Active Substance: ADALIMUMAB
     Indication: ANKYLOSING SPONDYLITIS
     Route: 058
     Dates: start: 20200421, end: 2020
  3. HUMIRA [Suspect]
     Active Substance: ADALIMUMAB
     Route: 058
     Dates: start: 2020, end: 202011
  4. IBUPROFEN. [Concomitant]
     Active Substance: IBUPROFEN
     Indication: PRODUCT USED FOR UNKNOWN INDICATION
     Dates: end: 2020

REACTIONS (31)
  - Road traffic accident [Unknown]
  - Pyrexia [Not Recovered/Not Resolved]
  - Tenderness [Unknown]
  - Loss of personal independence in daily activities [Not Recovered/Not Resolved]
  - Abdominal distension [Not Recovered/Not Resolved]
  - Blood iron decreased [Unknown]
  - Pain [Unknown]
  - Drug ineffective [Not Recovered/Not Resolved]
  - Pain [Unknown]
  - Musculoskeletal stiffness [Not Recovered/Not Resolved]
  - Incision site erythema [Unknown]
  - Gastric disorder [Not Recovered/Not Resolved]
  - Arthralgia [Unknown]
  - Discomfort [Unknown]
  - Impaired healing [Unknown]
  - Dyspnoea [Unknown]
  - Joint swelling [Unknown]
  - Spinal decompression [Unknown]
  - Heart valve incompetence [Unknown]
  - Bladder pain [Unknown]
  - Fatigue [Not Recovered/Not Resolved]
  - Joint range of motion decreased [Unknown]
  - Weight increased [Not Recovered/Not Resolved]
  - Procedural pain [Unknown]
  - Muscle spasms [Not Recovered/Not Resolved]
  - Nausea [Not Recovered/Not Resolved]
  - Neck pain [Not Recovered/Not Resolved]
  - Back pain [Not Recovered/Not Resolved]
  - General physical condition abnormal [Unknown]
  - Headache [Unknown]
  - Clostridium difficile infection [Unknown]

NARRATIVE: CASE EVENT DATE: 2020
